FAERS Safety Report 5211941-X (Version None)
Quarter: 2007Q1

REPORT INFORMATION
  Report Type: 
  Country: None (occurrence: None)
  Receive Date: 20070116
  Receipt Date: 20070105
  Transmission Date: 20070707
  Serious: Yes (Hospitalization)
  Sender: FDA-Public Use
  Company Number: 01-0054 FU 1

PATIENT
  Age: 21 Year
  Sex: Female

DRUGS (2)
  1. PONSTYL (MEFENAMIC ACID 250MG CAPSULES) [Suspect]
     Indication: DYSMENORRHOEA
     Dosage: 1TB, Q4, PO
     Route: 048
     Dates: start: 19980501
  2. DEPAMIDE 300 (VALPROMIDE) [Suspect]
     Indication: COLITIS
     Dates: start: 20000101

REACTIONS (3)
  - COLITIS [None]
  - MENTAL DISORDER [None]
  - OEDEMATOUS PANCREATITIS [None]
